FAERS Safety Report 23189197 (Version 1)
Quarter: 2023Q4

REPORT INFORMATION
  Report Type: Spontaneous
  Country: CN (occurrence: CN)
  Receive Date: 20231115
  Receipt Date: 20231115
  Transmission Date: 20240109
  Serious: Yes (Hospitalization, Other)
  Sender: FDA-Public Use
  Company Number: None

PATIENT
  Age: 60 Year
  Sex: Male
  Weight: 56 kg

DRUGS (13)
  1. CYCLOPHOSPHAMIDE [Suspect]
     Active Substance: CYCLOPHOSPHAMIDE
     Indication: Lymphoma
     Dosage: 1100 MG, ONE TIME IN ONE DAY, D2, AS A PART OF SIXTH CYCLE OF TARGETED COMBINED CHEMOTHERAPY, DILUTE
     Route: 041
     Dates: start: 20231007, end: 20231007
  2. CYCLOPHOSPHAMIDE [Suspect]
     Active Substance: CYCLOPHOSPHAMIDE
     Indication: Extranodal marginal zone B-cell lymphoma (MALT type) stage IV
  3. RITUXIMAB [Suspect]
     Active Substance: RITUXIMAB
     Indication: Lymphoma
     Dosage: 500 MG, ONE TIME IN ONE DAY, D1, AS A PART OF SIXTH CYCLE OF TARGETED COMBINED CHEMOTHERAPY, DILUTED
     Route: 041
     Dates: start: 20231006, end: 20231006
  4. RITUXIMAB [Suspect]
     Active Substance: RITUXIMAB
     Indication: Extranodal marginal zone B-cell lymphoma (MALT type) stage IV
  5. EPIRUBICIN HYDROCHLORIDE [Suspect]
     Active Substance: EPIRUBICIN HYDROCHLORIDE
     Indication: Lymphoma
     Dosage: 110 MG, ONE TIME IN ONE DAY, D2, AS A PART OF SIXTH CYCLE OF TARGETED COMBINED CHEMOTHERAPY, DILUTED
     Route: 041
     Dates: start: 20231007, end: 20231007
  6. EPIRUBICIN HYDROCHLORIDE [Suspect]
     Active Substance: EPIRUBICIN HYDROCHLORIDE
     Indication: Extranodal marginal zone B-cell lymphoma (MALT type) stage IV
  7. VINCRISTINE SULFATE [Suspect]
     Active Substance: VINCRISTINE SULFATE
     Indication: Lymphoma
     Dosage: 2 MG, ONE TIME IN ONE DAY, D2, AS A PART OF SIXTH CYCLE OF TARGETED COMBINED CHEMOTHERAPY
     Route: 041
     Dates: start: 20231007, end: 20231007
  8. VINCRISTINE SULFATE [Suspect]
     Active Substance: VINCRISTINE SULFATE
     Indication: Extranodal marginal zone B-cell lymphoma (MALT type) stage IV
  9. PREDNISOLONE ACETATE [Suspect]
     Active Substance: PREDNISOLONE ACETATE
     Indication: Lymphoma
     Dosage: 100 MG, ONE TIME IN ONE DAY, D2-6, AS A PART OF SIXTH CYCLE OF TARGETED COMBINED CHEMOTHERAPY
     Route: 048
     Dates: start: 20231007, end: 20231012
  10. PREDNISOLONE ACETATE [Suspect]
     Active Substance: PREDNISOLONE ACETATE
     Indication: Extranodal marginal zone B-cell lymphoma (MALT type) stage IV
  11. SODIUM CHLORIDE [Suspect]
     Active Substance: SODIUM CHLORIDE
     Indication: Lymphoma
     Dosage: 100 ML, ONE TIME IN ONE DAY, D2, AS A PART OF SIXTH CYCLE OF TARGETED COMBINED CHEMOTHERAPY, USED TO
     Route: 041
     Dates: start: 20231007, end: 20231007
  12. SODIUM CHLORIDE [Suspect]
     Active Substance: SODIUM CHLORIDE
     Dosage: 500 ML, ONE TIME IN ONE DAY, D1, AS A PART OF SIXTH CYCLE OF TARGETED COMBINED CHEMOTHERAPY, USED TO
     Route: 041
     Dates: start: 20231006, end: 20231006
  13. DEXTROSE [Suspect]
     Active Substance: DEXTROSE\DEXTROSE MONOHYDRATE
     Indication: Lymphoma
     Dosage: 500 ML, ONE TIME IN ONE DAY, D2, AS A PART OF SIXTH CYCLE OF TARGETED COMBINED CHEMOTHERAPY, USED TO
     Route: 041
     Dates: start: 20231007, end: 20231007

REACTIONS (11)
  - Pollakiuria [Recovering/Resolving]
  - Dysuria [Recovering/Resolving]
  - Immunodeficiency [Unknown]
  - Infection [Recovering/Resolving]
  - Nausea [Recovered/Resolved]
  - Abdominal pain lower [Recovered/Resolved]
  - Myelosuppression [Recovering/Resolving]
  - Fatigue [Unknown]
  - Decreased appetite [Unknown]
  - Oropharyngeal pain [Unknown]
  - Chemical cystitis [Unknown]

NARRATIVE: CASE EVENT DATE: 20231008
